FAERS Safety Report 17656424 (Version 6)
Quarter: 2020Q2

REPORT INFORMATION
  Report Type: Spontaneous
  Country: ES (occurrence: ES)
  Receive Date: 20200410
  Receipt Date: 20200625
  Transmission Date: 20200713
  Serious: Yes (Other)
  Sender: FDA-Public Use
  Company Number: NVSC2020ES096627

PATIENT
  Age: 39 Year
  Sex: Female

DRUGS (14)
  1. BOSENTAN. [Interacting]
     Active Substance: BOSENTAN
     Indication: MIXED CONNECTIVE TISSUE DISEASE
     Dosage: UNK
     Route: 048
  2. AZATHIOPRINE. [Interacting]
     Active Substance: AZATHIOPRINE
     Indication: IMMUNOSUPPRESSANT DRUG THERAPY
  3. CYCLOPHOSPHAMIDE. [Concomitant]
     Active Substance: CYCLOPHOSPHAMIDE
     Indication: MIXED CONNECTIVE TISSUE DISEASE
     Dosage: UNK, BOLUS
     Route: 065
  4. TACROLIMUS. [Interacting]
     Active Substance: TACROLIMUS
     Indication: MIXED CONNECTIVE TISSUE DISEASE
     Dosage: 2.5-3.0 MG/DAY IN TWO DIVIDED DOSES
     Route: 065
  5. MYCOPHENOLATE MOFETIL. [Interacting]
     Active Substance: MYCOPHENOLATE MOFETIL
     Indication: IMMUNOSUPPRESSANT DRUG THERAPY
  6. RITUXIMAB. [Interacting]
     Active Substance: RITUXIMAB
     Indication: MIXED CONNECTIVE TISSUE DISEASE
     Dosage: UNK,PERFUSION
     Route: 065
  7. MACITENTAN [Suspect]
     Active Substance: MACITENTAN
     Indication: SKIN ULCER
     Dosage: UNK
     Route: 065
  8. ALPROSTADIL. [Concomitant]
     Active Substance: ALPROSTADIL
     Indication: SKIN ULCER
     Dosage: UNK
     Route: 065
  9. OPSUMIT [Concomitant]
     Active Substance: MACITENTAN
     Indication: SKIN ULCER
     Dosage: UNK
     Route: 065
  10. MYCOPHENOLATE MOFETIL. [Suspect]
     Active Substance: MYCOPHENOLATE MOFETIL
     Indication: MIXED CONNECTIVE TISSUE DISEASE
     Dosage: 2.5-3.0 MG/DAY IN TWO DIVIDED DOSES
     Route: 065
  11. RITUXIMAB. [Interacting]
     Active Substance: RITUXIMAB
     Indication: IMMUNOSUPPRESSANT DRUG THERAPY
  12. AZATHIOPRINE. [Interacting]
     Active Substance: AZATHIOPRINE
     Indication: MIXED CONNECTIVE TISSUE DISEASE
     Dosage: UNK
     Route: 065
  13. BOSENTAN. [Interacting]
     Active Substance: BOSENTAN
     Indication: SKIN ULCER
  14. ALPROSTADIL. [Concomitant]
     Active Substance: ALPROSTADIL
     Indication: RAYNAUD^S PHENOMENON

REACTIONS (7)
  - Hypersensitivity [Unknown]
  - Drug interaction [Unknown]
  - Therapy partial responder [Unknown]
  - Product use in unapproved indication [Unknown]
  - Enterocolitis [Unknown]
  - Haematotoxicity [Unknown]
  - Off label use [Unknown]
